FAERS Safety Report 7354711-9 (Version None)
Quarter: 2011Q1

REPORT INFORMATION
  Report Type: 
  Country: None (occurrence: None)
  Receive Date: 20110316
  Receipt Date: 20110311
  Transmission Date: 20110831
  Serious: No
  Sender: FDA-Public Use
  Company Number: US-TEVA-271201USA

PATIENT
  Sex: Female
  Weight: 44.492 kg

DRUGS (3)
  1. ALBUTEROL INHALER [Concomitant]
     Indication: ASTHMA
  2. PLAN B ONE-STEP [Suspect]
     Indication: POST COITAL CONTRACEPTION
     Route: 048
     Dates: start: 20110307, end: 20110307
  3. BACTRIM [Concomitant]
     Indication: BACTERIAL DISEASE CARRIER

REACTIONS (1)
  - MENSTRUATION IRREGULAR [None]
